FAERS Safety Report 23827336 (Version 2)
Quarter: 2024Q2

REPORT INFORMATION
  Report Type: Report from Study
  Country: US (occurrence: US)
  Receive Date: 20240507
  Receipt Date: 20240515
  Transmission Date: 20240716
  Serious: Yes (Other)
  Sender: FDA-Public Use
  Company Number: US-ABBVIE-5743430

PATIENT
  Sex: Female
  Weight: 79 kg

DRUGS (1)
  1. RINVOQ [Suspect]
     Active Substance: UPADACITINIB
     Indication: Rheumatoid arthritis
     Route: 048
     Dates: start: 20240201

REACTIONS (3)
  - Surgery [Recovered/Resolved]
  - Foot deformity [Unknown]
  - Metatarsal excision [Unknown]

NARRATIVE: CASE EVENT DATE: 20240101
